FAERS Safety Report 10596540 (Version 1)
Quarter: 2014Q4

REPORT INFORMATION
  Report Type: Spontaneous
  Country: DK (occurrence: DK)
  Receive Date: 20141120
  Receipt Date: 20141120
  Transmission Date: 20150529
  Serious: Yes (Death, Hospitalization)
  Sender: FDA-Public Use
  Company Number: DK-ACTAVIS-2014-24641

PATIENT
  Age: 27 Year
  Sex: Male
  Weight: 125 kg

DRUGS (2)
  1. QUETIAPINE (UNKNOWN) [Suspect]
     Active Substance: QUETIAPINE
     Indication: ANXIETY DISORDER
     Dosage: UNK, INCREASING DURING THE LAST YEAR UP TO 400MG/DAY
     Route: 065
  2. QUETIAPINE (UNKNOWN) [Suspect]
     Active Substance: QUETIAPINE
     Dosage: 400 MG, DAILY
     Route: 065

REACTIONS (3)
  - Pancreatitis acute [Fatal]
  - Hypertriglyceridaemia [Fatal]
  - Diabetic ketoacidosis [Fatal]
